FAERS Safety Report 25322474 (Version 1)
Quarter: 2025Q2

REPORT INFORMATION
  Report Type: Spontaneous
  Country: US (occurrence: US)
  Receive Date: 20250516
  Receipt Date: 20250516
  Transmission Date: 20250716
  Serious: No
  Sender: STRIDES
  Company Number: US-STRIDES ARCOLAB LIMITED-2024SP015572

PATIENT
  Age: 62 Year
  Sex: Male

DRUGS (6)
  1. VANCOMYCIN [Suspect]
     Active Substance: VANCOMYCIN
     Indication: Anti-neutrophil cytoplasmic antibody positive vasculitis
     Route: 065
  2. HYDRALAZINE [Concomitant]
     Active Substance: HYDRALAZINE HYDROCHLORIDE
     Indication: Hypertension
     Route: 065
  3. PLAVIX [Concomitant]
     Active Substance: CLOPIDOGREL BISULFATE
     Indication: Product used for unknown indication
     Route: 065
  4. LEVAQUIN [Concomitant]
     Active Substance: LEVOFLOXACIN
     Indication: Pneumonia
     Route: 065
  5. BACTRIM [Concomitant]
     Active Substance: SULFAMETHOXAZOLE\TRIMETHOPRIM
     Indication: Pneumonia
     Route: 065
  6. ZOSYN [Concomitant]
     Active Substance: PIPERACILLIN SODIUM\TAZOBACTAM SODIUM
     Indication: Anti-neutrophil cytoplasmic antibody positive vasculitis
     Route: 065

REACTIONS (1)
  - Off label use [Unknown]
